FAERS Safety Report 9980838 (Version 3)
Quarter: 2015Q4

REPORT INFORMATION
  Report Type: Report from Study
  Country: JP (occurrence: JP)
  Receive Date: 20140307
  Receipt Date: 20151230
  Transmission Date: 20160305
  Serious: Yes (Hospitalization, Other)
  Sender: FDA-Public Use
  Company Number: JP-009507513-1305JPN006479

PATIENT
  Age: 77 Year
  Sex: Male
  Weight: 66 kg

DRUGS (16)
  1. TEMOZOLOMIDE. [Suspect]
     Active Substance: TEMOZOLOMIDE
     Dosage: 200 MG/M2 (X 5DAYS/28 DAYS), QD
     Route: 048
     Dates: start: 20080827, end: 20091102
  2. URIEF [Suspect]
     Active Substance: SILODOSIN
     Dosage: DAILY DOSAGE UNKNOWN
     Route: 048
     Dates: start: 20081118
  3. NAVOBAN [Concomitant]
     Active Substance: TROPISETRON HYDROCHLORIDE
     Indication: PROPHYLAXIS
     Dosage: DAILY DOSAGE UNKNOWN
     Route: 048
     Dates: start: 20080520, end: 20091102
  4. MEVALOTIN [Concomitant]
     Active Substance: PRAVASTATIN SODIUM
     Dosage: DAILY DOSAGE UNKOWN, FORMULATION: POR
     Route: 048
     Dates: start: 20080520
  5. TEMOZOLOMIDE. [Suspect]
     Active Substance: TEMOZOLOMIDE
     Indication: ANAPLASTIC ASTROCYTOMA
     Dosage: 75 MG/M2, QD
     Route: 048
     Dates: start: 20080520, end: 20080627
  6. TEMOZOLOMIDE. [Suspect]
     Active Substance: TEMOZOLOMIDE
     Dosage: 150 MG/M2, QD
     Route: 048
     Dates: start: 20080730, end: 20080803
  7. TEMOZOLOMIDE. [Suspect]
     Active Substance: TEMOZOLOMIDE
     Dosage: 150 MG/M2, Q3W
     Route: 048
     Dates: start: 20090527, end: 20090531
  8. GASTER [Concomitant]
     Active Substance: FAMOTIDINE
     Dosage: DAILY DOSAGE UNKNOWN
     Route: 048
  9. PERSELIN TABLETS 25 MG [Suspect]
     Active Substance: ALLYLESTRENOL
     Dosage: DAILY DOSE UNKNOWN
     Route: 048
     Dates: start: 20081118
  10. GASPORT D [Concomitant]
     Dosage: DAILY DOSAGE UNKNOWN
     Route: 048
  11. LIDUC M [Concomitant]
     Active Substance: PRAVASTATIN SODIUM
     Dosage: DAILY DOSAGE UNKNOWN
     Route: 048
  12. ISOBIDE [Concomitant]
     Active Substance: ISOSORBIDE
     Dosage: DAILY DOSAGE UNKNOWN, FORMULATION: POR
     Route: 048
     Dates: start: 20080525
  13. DEPAKENE [Suspect]
     Active Substance: VALPROIC ACID
     Dosage: DAILY DOSE UNKNOWN, FORMULATION: POR
     Route: 048
  14. PREDONINE [Concomitant]
     Active Substance: PREDNISOLONE\PREDNISOLONE ACETATE\PREDNISOLONE SODIUM SUCCINATE
     Dosage: DAILY DOSAGE UNKNOWN
     Route: 048
  15. PRIMPERAN [Concomitant]
     Active Substance: METOCLOPRAMIDE HYDROCHLORIDE
     Dosage: DAILY DOSAGE UNKNOWN, FORMULATION: POR
     Route: 048
     Dates: start: 20080525
  16. BAKTAR [Concomitant]
     Active Substance: SULFAMETHOXAZOLE\TRIMETHOPRIM
     Indication: ANTIFUNGAL PROPHYLAXIS
     Dosage: DAILY DOSAGE UNKNOWN, FORMUALTION: POR
     Route: 048
     Dates: start: 20080520

REACTIONS (5)
  - Epilepsy [Recovered/Resolved]
  - Lymphocyte count decreased [Recovering/Resolving]
  - Neurogenic bladder [Recovering/Resolving]
  - Hepatic function abnormal [Not Recovered/Not Resolved]
  - Constipation [Not Recovered/Not Resolved]

NARRATIVE: CASE EVENT DATE: 20080610
